FAERS Safety Report 15810697 (Version 1)
Quarter: 2019Q1

REPORT INFORMATION
  Report Type: Spontaneous
  Country: US (occurrence: US)
  Receive Date: 20190111
  Receipt Date: 20190111
  Transmission Date: 20190417
  Serious: Yes (Hospitalization)
  Sender: FDA-Public Use
  Company Number: US-ROCHE-2048017

PATIENT
  Sex: Male

DRUGS (13)
  1. NEUPOGEN [Concomitant]
     Active Substance: FILGRASTIM
     Dosage: 300MCG/0.5ML PFS(1X10)
     Route: 065
  2. VINCRISTINE [Concomitant]
     Active Substance: VINCRISTINE
     Dosage: 1MG/1ML
     Route: 065
  3. DEXAMETHASONE. [Concomitant]
     Active Substance: DEXAMETHASONE
     Dosage: SDV
     Route: 065
  4. DIGITEK [Concomitant]
     Active Substance: DIGOXIN
  5. ONDANSETRON [Concomitant]
     Active Substance: ONDANSETRON
     Dosage: 2MG/ML 2ML SDV(1X25)
     Route: 065
  6. PREDNISONE. [Concomitant]
     Active Substance: PREDNISONE
  7. TRAVATAN Z [Concomitant]
     Active Substance: TRAVOPROST
  8. ATORVASTIN [Concomitant]
     Active Substance: ATORVASTATIN
     Indication: DIFFUSE LARGE B-CELL LYMPHOMA
  9. DIPHENHYDRAMINE. [Concomitant]
     Active Substance: DIPHENHYDRAMINE
     Dosage: 50MG/1ML
     Route: 065
  10. DOXORUBICIN [Concomitant]
     Active Substance: DOXORUBICIN
     Dosage: 2MG/ML
     Route: 065
  11. CYCLOPHOSPHAMIDE. [Concomitant]
     Active Substance: CYCLOPHOSPHAMIDE
     Route: 065
  12. RITUXAN [Suspect]
     Active Substance: RITUXIMAB
     Indication: DIFFUSE LARGE B-CELL LYMPHOMA
     Dosage: INFUSE 712 VIA IV EVERY 21 DAYS
     Route: 042
     Dates: start: 20171121
  13. XARELTO [Concomitant]
     Active Substance: RIVAROXABAN

REACTIONS (1)
  - Rash [Unknown]
